FAERS Safety Report 10567424 (Version 1)
Quarter: 2014Q4

REPORT INFORMATION
  Report Type: Spontaneous
  Country: GB (occurrence: GB)
  Receive Date: 20141106
  Receipt Date: 20141106
  Transmission Date: 20150529
  Serious: Yes (Other)
  Sender: FDA-Public Use
  Company Number: GB-ACCORD-026795

PATIENT

DRUGS (3)
  1. ETOPOSIDE. [Suspect]
     Active Substance: ETOPOSIDE
     Indication: PANCREATIC NEUROENDOCRINE TUMOUR
  2. CARBOPLATIN. [Suspect]
     Active Substance: CARBOPLATIN
     Indication: PANCREATIC NEUROENDOCRINE TUMOUR
  3. TOPOTECAN/TOPOTECAN HYDROCHLORIDE [Suspect]
     Active Substance: TOPOTECAN\TOPOTECAN HYDROCHLORIDE
     Indication: PANCREATIC NEUROENDOCRINE TUMOUR

REACTIONS (3)
  - Pancreatic neuroendocrine tumour [None]
  - Off label use [Unknown]
  - Malignant neoplasm progression [Unknown]

NARRATIVE: CASE EVENT DATE: 201211
